FAERS Safety Report 25298867 (Version 2)
Quarter: 2025Q2

REPORT INFORMATION
  Report Type: Spontaneous
  Country: US (occurrence: US)
  Receive Date: 20250512
  Receipt Date: 20250619
  Transmission Date: 20250716
  Serious: Yes (Hospitalization)
  Sender: BRISTOL-MYERS SQUIBB COMPANY
  Company Number: US-BRISTOL-MYERS SQUIBB COMPANY-2025-064407

PATIENT
  Age: 73 Year
  Sex: Female
  Weight: 52.62 kg

DRUGS (1)
  1. REVLIMID [Suspect]
     Active Substance: LENALIDOMIDE
     Indication: Plasma cell myeloma
     Dosage: FREQ: DAILY FOR 3 WEEKS ON, THEN 1 WEEK OFF
     Route: 048

REACTIONS (4)
  - Nasopharyngitis [Recovering/Resolving]
  - Tympanic membrane perforation [Recovering/Resolving]
  - Enzyme level abnormal [Recovering/Resolving]
  - White blood cell count decreased [Unknown]

NARRATIVE: CASE EVENT DATE: 20250101
